FAERS Safety Report 7945430-6 (Version None)
Quarter: 2011Q4

REPORT INFORMATION
  Report Type: 
  Country: None (occurrence: None)
  Receive Date: 20111129
  Receipt Date: 20111118
  Transmission Date: 20120403
  Serious: Yes (Hospitalization, Other)
  Sender: FDA-Public Use
  Company Number: HU-ELI_LILLY_AND_COMPANY-HU201109007039

PATIENT
  Age: 49 Year
  Sex: Male

DRUGS (7)
  1. PANTOPRAZOLE [Concomitant]
  2. BYETTA [Suspect]
     Indication: TYPE 2 DIABETES MELLITUS
     Dosage: 10 UG, QD
     Route: 058
     Dates: start: 20110201, end: 20110927
  3. ASPIRIN [Concomitant]
  4. INDAPAMID [Concomitant]
  5. PERINDOPRIL ERBUMINE [Concomitant]
  6. METFORMIN HCL [Concomitant]
  7. GLIMEPIRIDE [Concomitant]

REACTIONS (4)
  - HAEMOLYTIC ANAEMIA [None]
  - ASTHENIA [None]
  - ANAEMIA [None]
  - ACUTE MYELOID LEUKAEMIA [None]
